FAERS Safety Report 6391099-4 (Version None)
Quarter: 2009Q4

REPORT INFORMATION
  Report Type: 
  Country: None (occurrence: None)
  Receive Date: 20091007
  Receipt Date: 20090929
  Transmission Date: 20100525
  Serious: No
  Sender: FDA-Public Use
  Company Number: US-B.I. PHARMACEUTICALS,INC./RIDGEFIELD-2009-BP-10673BP

PATIENT
  Sex: Female

DRUGS (9)
  1. SPIRIVA [Suspect]
     Indication: CHRONIC OBSTRUCTIVE PULMONARY DISEASE
     Dosage: 18 MCG
     Route: 055
     Dates: start: 20090616
  2. SPIRIVA [Suspect]
     Indication: DYSPNOEA
  3. LEVOTHYROX-SOD [Concomitant]
     Indication: THYROID DISORDER
     Dosage: 0.05 MG
  4. SINGULAIR [Concomitant]
     Indication: HYPERSENSITIVITY
  5. ASPIRIN [Concomitant]
     Dosage: 81 MG
  6. LIPITOR [Concomitant]
     Dosage: 10 MG
  7. CALCIUM 500+D [Concomitant]
  8. LOVAZA [Concomitant]
  9. ONE A DAY VITAMINS [Concomitant]

REACTIONS (1)
  - ALOPECIA [None]
